FAERS Safety Report 9991842 (Version 2)
Quarter: 2014Q1

REPORT INFORMATION
  Report Type: Spontaneous
  Country: US (occurrence: US)
  Receive Date: 20140310
  Receipt Date: 20140321
  Transmission Date: 20141002
  Serious: Yes (Other)
  Sender: FDA-Public Use
  Company Number: US-GLAXOSMITHKLINE-A1063978A

PATIENT
  Sex: 0

DRUGS (3)
  1. NICOTINE GUM [Suspect]
     Indication: SMOKING CESSATION THERAPY
     Route: 002
  2. NICOTINE PATCH [Suspect]
     Indication: SMOKING CESSATION THERAPY
     Route: 062
  3. UNKNOWN MEDICATION [Suspect]
     Indication: SMOKING CESSATION THERAPY
     Dosage: 1TAB PER DAY
     Route: 048

REACTIONS (6)
  - Diabetes mellitus [Unknown]
  - Overdose [Unknown]
  - Vomiting [Unknown]
  - Abnormal dreams [Unknown]
  - Drug ineffective [Unknown]
  - Diabetic foot [Unknown]
